FAERS Safety Report 11965348 (Version 1)
Quarter: 2016Q1

REPORT INFORMATION
  Report Type: Spontaneous
  Country: US (occurrence: US)
  Receive Date: 20160127
  Receipt Date: 20160127
  Transmission Date: 20160526
  Serious: No
  Sender: FDA-Public Use
  Company Number: US-BAYER-2016-015546

PATIENT
  Age: 89 Year
  Sex: Female
  Weight: 52.61 kg

DRUGS (1)
  1. ALEVE [Suspect]
     Active Substance: NAPROXEN SODIUM
     Dosage: 1 DF, PRN
     Route: 048

REACTIONS (2)
  - Expired product administered [None]
  - Circumstance or information capable of leading to medication error [None]
